FAERS Safety Report 5215258-9 (Version None)
Quarter: 2007Q1

REPORT INFORMATION
  Report Type: 
  Country: None (occurrence: None)
  Receive Date: 20070117
  Receipt Date: 20070109
  Transmission Date: 20070707
  Serious: Yes (Other)
  Sender: FDA-Public Use
  Company Number: GXKR2007GB00631

PATIENT
  Age: 16 Year
  Sex: Male
  Weight: 86.5 kg

DRUGS (4)
  1. CEFTRIAXONE [Suspect]
     Indication: OSTEOMYELITIS CHRONIC
     Dosage: 2 G, INTRAVENOUS
     Route: 042
     Dates: start: 20050501, end: 20060501
  2. CEPHALEXIN [Concomitant]
  3. MEBEVERINE (MEBEVERINE) [Concomitant]
  4. OMEPRAZOLE [Concomitant]

REACTIONS (1)
  - CHOLELITHIASIS [None]
